FAERS Safety Report 15014680 (Version 1)
Quarter: 2018Q2

REPORT INFORMATION
  Report Type: Spontaneous
  Country: US (occurrence: US)
  Receive Date: 20180615
  Receipt Date: 20180615
  Transmission Date: 20180711
  Serious: Yes (Hospitalization)
  Sender: FDA-Public Use
  Company Number: US-STRIDES ARCOLAB LIMITED-2018SP004895

PATIENT

DRUGS (1)
  1. HYDRALAZINE HCL [Suspect]
     Active Substance: HYDRALAZINE HYDROCHLORIDE
     Indication: HYPERTENSION
     Dosage: UNK
     Route: 065

REACTIONS (10)
  - Pallor [Unknown]
  - Dyspnoea [Recovered/Resolved]
  - Vasculitis [Unknown]
  - Pulmonary alveolar haemorrhage [Recovered/Resolved]
  - Pulmonary renal syndrome [Unknown]
  - Haemoptysis [Unknown]
  - Cough [Recovered/Resolved]
  - Rales [Recovered/Resolved]
  - Respiratory distress [Recovered/Resolved]
  - Hypoxia [Recovered/Resolved]
